FAERS Safety Report 11874665 (Version 1)
Quarter: 2015Q4

REPORT INFORMATION
  Report Type: Spontaneous
  Country: US (occurrence: None)
  Receive Date: 20151228
  Receipt Date: 20151228
  Transmission Date: 20160305
  Serious: No
  Sender: FDA-Public Use
  Company Number: None

PATIENT
  Age: 55 Year
  Sex: Male
  Weight: 95.26 kg

DRUGS (1)
  1. LISINOPRIL 10MG LUPIN [Suspect]
     Active Substance: LISINOPRIL
     Indication: BLOOD PRESSURE MEASUREMENT
     Dosage: 1 TAB DAILY, ONCE DAILY, TAKEN BY MOUTH
     Route: 048
     Dates: start: 20151215, end: 20151220

REACTIONS (1)
  - Back pain [None]

NARRATIVE: CASE EVENT DATE: 20151216
